FAERS Safety Report 12436171 (Version 1)
Quarter: 2016Q2

REPORT INFORMATION
  Report Type: Spontaneous
  Country: JP (occurrence: JP)
  Receive Date: 20160605
  Receipt Date: 20160605
  Transmission Date: 20160815
  Serious: Yes (Hospitalization)
  Sender: FDA-Public Use
  Company Number: JP-PFIZER INC-2016285292

PATIENT

DRUGS (2)
  1. FOLIAMIN [Suspect]
     Active Substance: FOLIC ACID
     Dosage: 15 MG, WEEKLY (DIVIDED 5 MGX 3 TIMES AT THURSDAY)
     Route: 048
  2. RHEUMATREX [Suspect]
     Active Substance: METHOTREXATE SODIUM
     Dosage: 6 MG, WEEKLY (EACH 2MG AT MONDAY MORNING/EVENING AND TUESDAY MORNING)
     Route: 048

REACTIONS (1)
  - Fracture [Unknown]
